FAERS Safety Report 5839939-9 (Version None)
Quarter: 2008Q3

REPORT INFORMATION
  Report Type: 
  Country: None (occurrence: None)
  Receive Date: 20080811
  Receipt Date: 20080731
  Transmission Date: 20090109
  Serious: Yes (Other)
  Sender: FDA-Public Use
  Company Number: US-JNJFOC-20080801049

PATIENT
  Sex: Female
  Weight: 65.77 kg

DRUGS (6)
  1. DURAGESIC-100 [Suspect]
     Route: 062
  2. DURAGESIC-100 [Suspect]
     Route: 062
  3. DURAGESIC-100 [Suspect]
     Indication: PAIN
     Route: 062
  4. FENTANYL TRANSDERMAL SYSTEM [Suspect]
     Indication: PAIN
     Route: 062
  5. ATIVAN [Concomitant]
     Indication: STRESS
     Route: 048
  6. TOPAMAX [Concomitant]
     Indication: HEADACHE
     Dosage: 50 MG IN MORNING, 50 MG IN AFTERNOON, 200 MG AT HOUR OF SLEEP
     Route: 065

REACTIONS (9)
  - APPLICATION SITE RASH [None]
  - FEELING DRUNK [None]
  - HYPERHIDROSIS [None]
  - INAPPROPRIATE SCHEDULE OF DRUG ADMINISTRATION [None]
  - LOSS OF CONSCIOUSNESS [None]
  - MALAISE [None]
  - MYALGIA [None]
  - ROAD TRAFFIC ACCIDENT [None]
  - WRONG TECHNIQUE IN DRUG USAGE PROCESS [None]
